FAERS Safety Report 4307269-2 (Version None)
Quarter: 2004Q1

REPORT INFORMATION
  Report Type: 
  Country: None (occurrence: None)
  Receive Date: 20040227
  Receipt Date: 20030611
  Transmission Date: 20041129
  Serious: Yes (Hospitalization, Disabling, Other)
  Sender: FDA-Public Use
  Company Number: WAES 0306USA01498

PATIENT
  Age: 2 Year
  Sex: Female

DRUGS (8)
  1. ALLOPURINOL [Suspect]
     Indication: ACUTE LYMPHOCYTIC LEUKAEMIA
  2. ELSPAR [Suspect]
     Indication: ACUTE LYMPHOCYTIC LEUKAEMIA
     Route: 041
     Dates: start: 19950201
  3. ELSPAR [Suspect]
     Route: 041
     Dates: start: 19950809
  4. DAUNORUBICIN HCL [Suspect]
     Indication: ACUTE LYMPHOCYTIC LEUKAEMIA
  5. DECADRON [Suspect]
     Indication: ACUTE LYMPHOCYTIC LEUKAEMIA
     Route: 048
  6. METHOTREXATE [Suspect]
     Indication: ACUTE LYMPHOCYTIC LEUKAEMIA
  7. VINCRISTINE SULFATE [Suspect]
     Indication: ACUTE LYMPHOCYTIC LEUKAEMIA
     Route: 042
  8. VINCRISTINE SULFATE [Suspect]
     Dates: start: 19950822

REACTIONS (47)
  - AGGRESSION [None]
  - ATTENTION DEFICIT/HYPERACTIVITY DISORDER [None]
  - BACK PAIN [None]
  - BLOOD CULTURE POSITIVE [None]
  - BLOOD DISORDER [None]
  - BRAIN DAMAGE [None]
  - BURN INFECTION [None]
  - CEREBRAL ATROPHY [None]
  - COGNITIVE DISORDER [None]
  - COMA [None]
  - CONSTIPATION [None]
  - DIFFICULTY IN WALKING [None]
  - DISCOMFORT [None]
  - DISORIENTATION [None]
  - DRUG HYPERSENSITIVITY [None]
  - DRUG TOXICITY [None]
  - DYSAESTHESIA [None]
  - EMOTIONAL DISORDER [None]
  - FATIGUE [None]
  - GAIT DISTURBANCE [None]
  - HAEMATOCRIT DECREASED [None]
  - HAEMOGLOBIN DECREASED [None]
  - HYDRONEPHROSIS [None]
  - HYDROURETER [None]
  - INCONTINENCE [None]
  - INJECTION SITE PAIN [None]
  - INJECTION SITE SWELLING [None]
  - INJURY [None]
  - INSOMNIA [None]
  - IRRITABILITY [None]
  - LOCAL SWELLING [None]
  - MEDICATION ERROR [None]
  - MOTOR DYSFUNCTION [None]
  - MUSCULOSKELETAL STIFFNESS [None]
  - NERVOUS SYSTEM DISORDER [None]
  - NEUROLOGICAL SYMPTOM [None]
  - NEUROMYOPATHY [None]
  - NEUTROPENIA [None]
  - OPPOSITIONAL DEFIANT DISORDER [None]
  - PAIN IN JAW [None]
  - PLATELET COUNT DECREASED [None]
  - PNEUMONIA STREPTOCOCCAL [None]
  - PYREXIA [None]
  - STARING [None]
  - STREPTOCOCCAL INFECTION [None]
  - TUMOUR LYSIS SYNDROME [None]
  - VIRAL UPPER RESPIRATORY TRACT INFECTION [None]
